FAERS Safety Report 12975911 (Version 14)
Quarter: 2022Q4

REPORT INFORMATION
  Report Type: Spontaneous
  Country: GB (occurrence: GB)
  Receive Date: 20161125
  Receipt Date: 20221006
  Transmission Date: 20230112
  Serious: Yes (Death, Hospitalization, Other)
  Sender: FDA-Public Use
  Company Number: GB-002147023-PHFR2016GB006759

PATIENT
  Age: 44 Year
  Sex: Female
  Weight: 114 kg

DRUGS (32)
  1. CLOZARIL [Suspect]
     Active Substance: CLOZAPINE
     Indication: Schizophrenia
     Dosage: 550 MILLIGRAM (550 MG, UNK)
     Route: 048
  2. CLOZARIL [Suspect]
     Active Substance: CLOZAPINE
     Dosage: 550 MILLIGRAM, QD
     Route: 048
     Dates: start: 20060101
  3. CLOZARIL [Suspect]
     Active Substance: CLOZAPINE
     Dosage: 550 MILLIGRAM, ONCE A DAY, QD
     Route: 048
     Dates: start: 20061120
  4. CLOZARIL [Suspect]
     Active Substance: CLOZAPINE
     Dosage: 550 MILLIGRAM, QD (550 MILLIGRAM, ONCE A DAY)
     Route: 048
     Dates: start: 2006
  5. ARIPIPRAZOLE [Suspect]
     Active Substance: ARIPIPRAZOLE
     Indication: Schizophrenia
     Dosage: UNK
     Route: 065
  6. ARIPIPRAZOLE [Suspect]
     Active Substance: ARIPIPRAZOLE
     Dosage: 10 MILLIGRAM
     Route: 048
     Dates: start: 20070101
  7. ARIPIPRAZOLE [Suspect]
     Active Substance: ARIPIPRAZOLE
     Dosage: 10 MILLIGRAM
     Route: 048
     Dates: start: 2007
  8. TRIHEXYPHENIDYL HYDROCHLORIDE [Suspect]
     Active Substance: TRIHEXYPHENIDYL HYDROCHLORIDE
     Indication: Salivary hypersecretion
     Dosage: 2 MILLIGRAM, UNK
     Route: 048
     Dates: start: 20110101
  9. TRIHEXYPHENIDYL HYDROCHLORIDE [Suspect]
     Active Substance: TRIHEXYPHENIDYL HYDROCHLORIDE
     Dosage: 2 MILLIGRAM,UNK
     Route: 048
     Dates: start: 2011
  10. ASPIRIN [Concomitant]
     Active Substance: ASPIRIN
     Indication: Product used for unknown indication
     Dosage: 75 MILLIGRAM, ONCE A DAY QD
     Route: 048
  11. ASPIRIN [Concomitant]
     Active Substance: ASPIRIN
     Dosage: 75 MILLIGRAM,UNK
     Route: 048
  12. METFORMIN [Concomitant]
     Active Substance: METFORMIN HYDROCHLORIDE
     Indication: Type 2 diabetes mellitus
     Dosage: UNK UNK, QD, ONCE A DAY
     Route: 048
  13. METFORMIN [Concomitant]
     Active Substance: METFORMIN HYDROCHLORIDE
     Dosage: UNK
     Route: 048
  14. PIOGLITAZONE [Concomitant]
     Active Substance: PIOGLITAZONE
     Indication: Type 2 diabetes mellitus
     Dosage: 45 MILLIGRAM, QD,ONCE A DAY
     Route: 048
  15. PIOGLITAZONE [Concomitant]
     Active Substance: PIOGLITAZONE
     Dosage: 45 MILLIGRAM, UNK
     Route: 048
  16. IRBESARTAN [Concomitant]
     Active Substance: IRBESARTAN
     Indication: Hypertension
     Dosage: 150 MILLIGRAM, QD
     Route: 048
  17. IRBESARTAN [Concomitant]
     Active Substance: IRBESARTAN
     Dosage: 150 MILLIGRAM, QD
     Route: 048
  18. OMEPRAZOLE [Concomitant]
     Active Substance: OMEPRAZOLE
     Indication: Abdominal discomfort
     Dosage: 20 MILLIGRAM, QD
     Route: 048
  19. OMEPRAZOLE [Concomitant]
     Active Substance: OMEPRAZOLE
     Dosage: 20 MILLIGRAM, QD, ONCE A DAY
     Route: 048
  20. OMEPRAZOLE [Concomitant]
     Active Substance: OMEPRAZOLE
     Dosage: 20 MILLIGRAM
     Route: 048
  21. BEZAFIBRATE [Concomitant]
     Active Substance: BEZAFIBRATE
     Indication: Hypercholesterolaemia
     Dosage: 400 MILLIGRAM, QD,ONCE A DAY
     Route: 048
  22. DOCUSATE SODIUM [Concomitant]
     Active Substance: DOCUSATE SODIUM
     Indication: Constipation
     Dosage: 200 MILLIGRAM, ONCE A DAY,BID
     Route: 048
  23. DOCUSATE SODIUM [Concomitant]
     Active Substance: DOCUSATE SODIUM
     Dosage: 400 MILLIGRAM, QD, ONCE A DAY,
     Route: 048
  24. DOCUSATE SODIUM [Concomitant]
     Active Substance: DOCUSATE SODIUM
     Dosage: 200 MILLIGRAM, 200 MG, TWO TIMES A DAY
     Route: 048
  25. VENTOLIN [Concomitant]
     Active Substance: ALBUTEROL SULFATE
     Indication: Chronic obstructive pulmonary disease
     Dosage: 100 MILLIGRAM, BID,ONCE A DAY
     Route: 065
  26. VENTOLIN [Concomitant]
     Active Substance: ALBUTEROL SULFATE
     Dosage: 200 MILLIGRAM, QD (100 MILLIGRAM, BID)
     Route: 065
  27. VENTOLIN [Concomitant]
     Active Substance: ALBUTEROL SULFATE
     Dosage: 100 MILLIGRAM, QD
     Route: 065
  28. BECLOMETHASONE [Concomitant]
     Active Substance: BECLOMETHASONE
     Indication: Chronic obstructive pulmonary disease
     Dosage: 50 MILLIGRAM, BID
     Route: 065
  29. BECLOMETHASONE [Concomitant]
     Active Substance: BECLOMETHASONE
     Dosage: 50 MILLIGRAM, BID
     Route: 065
  30. BECLOMETHASONE [Concomitant]
     Active Substance: BECLOMETHASONE
     Dosage: 50 MILLIGRAM, BID(50 MG, TWO TIMES A DAY)
     Route: 065
  31. BECLOMETHASONE [Concomitant]
     Active Substance: BECLOMETHASONE
     Dosage: 50 MILLIGRAM, ONCE A DAY, BID
     Route: 065
  32. BECLOMETHASONE [Concomitant]
     Active Substance: BECLOMETHASONE
     Dosage: 100 MILLIGRAM(50 MILLIGRAM, BID)
     Route: 065

REACTIONS (7)
  - Diverticular perforation [Fatal]
  - Gastric disorder [Fatal]
  - Haematemesis [Fatal]
  - Unresponsive to stimuli [Fatal]
  - Salivary hypersecretion [Fatal]
  - Constipation [Fatal]
  - Peritonitis [Fatal]

NARRATIVE: CASE EVENT DATE: 20110101
